FAERS Safety Report 12082278 (Version 17)
Quarter: 2025Q1

REPORT INFORMATION
  Report Type: Report from Study
  Country: CA (occurrence: CA)
  Receive Date: 20160217
  Receipt Date: 20250218
  Transmission Date: 20250408
  Serious: Yes (Other)
  Sender: ROCHE
  Company Number: CA-ROCHE-1177020

PATIENT
  Age: 67 Year
  Sex: Female
  Weight: 59.5 kg

DRUGS (67)
  1. ACTEMRA [Suspect]
     Active Substance: TOCILIZUMAB
     Indication: Rheumatoid arthritis
     Dosage: DRUG DOSE FIRST ADMINISTERED IS 244 MG MILLIGRAM(S)
     Route: 040
     Dates: start: 20110812, end: 20111201
  2. ACTEMRA [Suspect]
     Active Substance: TOCILIZUMAB
     Dosage: DRUG DOSE FIRST ADMINISTERED IS 366 MG MILLIGRAM(S)
     Route: 040
     Dates: start: 20120104, end: 20120618
  3. ACTEMRA [Suspect]
     Active Substance: TOCILIZUMAB
     Dosage: DRUG DOSE FIRST ADMINISTERED IS 336 MG MILLIGRAM(S)
     Route: 040
     Dates: start: 20120716, end: 20120813
  4. ACTEMRA [Suspect]
     Active Substance: TOCILIZUMAB
     Dosage: DRUG DOSE FIRST ADMINISTERED IS 366 MG MILLIGRAM(S)
     Route: 040
     Dates: start: 20120911, end: 20120911
  5. ACTEMRA [Suspect]
     Active Substance: TOCILIZUMAB
     Dosage: DRUG DOSE FIRST ADMINISTERED IS 420 MG MILLIGRAM(S)
     Route: 040
     Dates: start: 20121010, end: 20150323
  6. ACTEMRA [Suspect]
     Active Substance: TOCILIZUMAB
     Dosage: DRUG DOSE FIRST ADMINISTERED IS 496 MG MILLIGRAM(S)
     Route: 040
     Dates: start: 20150420, end: 20151117
  7. ACTEMRA [Suspect]
     Active Substance: TOCILIZUMAB
     Dosage: DRUG DOSE FIRST ADMINISTERED IS 448 MG MILLIGRAM(S)
     Route: 040
     Dates: start: 20151216, end: 20161109
  8. ACTEMRA [Suspect]
     Active Substance: TOCILIZUMAB
     Dosage: DRUG DOSE FIRST ADMINISTERED IS 456 MG MILLIGRAM(S)
     Route: 040
     Dates: start: 20161209, end: 20171114
  9. ACTEMRA [Suspect]
     Active Substance: TOCILIZUMAB
     Dosage: DRUG DOSE FIRST ADMINISTERED IS 464 MG MILLIGRAM(S)
     Route: 040
     Dates: start: 20171211, end: 20181113
  10. ACTEMRA [Suspect]
     Active Substance: TOCILIZUMAB
     Dosage: DRUG DOSE FIRST ADMINISTERED IS 440 MG MILLIGRAM(S)
     Route: 040
     Dates: start: 20181211, end: 20190618
  11. ACTEMRA [Suspect]
     Active Substance: TOCILIZUMAB
     Dosage: DRUG DOSE FIRST ADMINISTERED IS 220 MG MILLIGRAM(S)
     Route: 040
     Dates: start: 20211118
  12. ACTEMRA [Suspect]
     Active Substance: TOCILIZUMAB
     Route: 040
  13. ACTEMRA [Suspect]
     Active Substance: TOCILIZUMAB
     Route: 040
     Dates: start: 20110812, end: 20111201
  14. ACTEMRA [Suspect]
     Active Substance: TOCILIZUMAB
     Route: 040
     Dates: start: 20181211, end: 20190618
  15. ACTEMRA [Suspect]
     Active Substance: TOCILIZUMAB
     Route: 040
     Dates: start: 20211118
  16. ACTEMRA [Suspect]
     Active Substance: TOCILIZUMAB
     Route: 040
     Dates: start: 20211108
  17. ACTEMRA [Suspect]
     Active Substance: TOCILIZUMAB
     Route: 040
  18. ACTEMRA [Suspect]
     Active Substance: TOCILIZUMAB
     Route: 040
  19. ACTEMRA [Suspect]
     Active Substance: TOCILIZUMAB
     Route: 040
  20. ACTEMRA [Suspect]
     Active Substance: TOCILIZUMAB
     Route: 040
  21. ACTEMRA [Suspect]
     Active Substance: TOCILIZUMAB
     Route: 040
  22. ACTEMRA [Suspect]
     Active Substance: TOCILIZUMAB
     Route: 040
  23. ACTEMRA [Suspect]
     Active Substance: TOCILIZUMAB
     Route: 040
  24. ACTEMRA [Suspect]
     Active Substance: TOCILIZUMAB
     Route: 040
  25. ACTEMRA [Suspect]
     Active Substance: TOCILIZUMAB
     Route: 040
  26. ACTEMRA [Suspect]
     Active Substance: TOCILIZUMAB
     Route: 040
  27. ACTEMRA [Suspect]
     Active Substance: TOCILIZUMAB
     Route: 040
  28. ACTEMRA [Suspect]
     Active Substance: TOCILIZUMAB
     Route: 040
  29. CRESTOR [Suspect]
     Active Substance: ROSUVASTATIN CALCIUM
     Indication: Blood cholesterol increased
     Route: 065
  30. ZOCOR [Suspect]
     Active Substance: SIMVASTATIN
     Indication: Blood cholesterol increased
     Route: 065
     Dates: start: 201412
  31. ZOCOR [Suspect]
     Active Substance: SIMVASTATIN
     Route: 065
     Dates: end: 20211102
  32. LIPITOR [Suspect]
     Active Substance: ATORVASTATIN CALCIUM
     Indication: Hypercholesterolaemia
     Route: 065
  33. SULFASALAZINE [Suspect]
     Active Substance: SULFASALAZINE
     Indication: Product used for unknown indication
     Route: 065
  34. METHOTREXATE [Suspect]
     Active Substance: METHOTREXATE
     Indication: Product used for unknown indication
     Route: 065
  35. ARAVA [Suspect]
     Active Substance: LEFLUNOMIDE
     Indication: Rheumatoid arthritis
     Route: 065
  36. ORENCIA [Suspect]
     Active Substance: ABATACEPT
     Indication: Product used for unknown indication
     Route: 065
  37. ALIGN [Concomitant]
     Active Substance: BIFIDOBACTERIUM LONGUM SUBSP. INFANTIS
  38. CANNABIDIOL\HERBALS [Concomitant]
     Active Substance: CANNABIDIOL\HERBALS
  39. ESOMEPRAZOLE [Concomitant]
     Active Substance: ESOMEPRAZOLE
     Route: 048
  40. ESOMEPRAZOLE [Concomitant]
     Active Substance: ESOMEPRAZOLE
     Route: 048
  41. LEFLUNOMIDE [Concomitant]
     Active Substance: LEFLUNOMIDE
  42. EZETIMIBE [Concomitant]
     Active Substance: EZETIMIBE
  43. EZETIMIBE [Concomitant]
     Active Substance: EZETIMIBE
  44. RANITIDINE [Concomitant]
     Active Substance: RANITIDINE
  45. FENOFIBRATE [Concomitant]
     Active Substance: FENOFIBRATE
     Route: 048
  46. FENOFIBRATE [Concomitant]
     Active Substance: FENOFIBRATE
     Route: 048
  47. PAXIL [Concomitant]
     Active Substance: PAROXETINE HYDROCHLORIDE
     Route: 048
  48. PAXIL [Concomitant]
     Active Substance: PAROXETINE HYDROCHLORIDE
     Route: 065
     Dates: start: 2024
  49. LORAZEPAM [Concomitant]
     Active Substance: LORAZEPAM
     Indication: Mental disorder
     Route: 065
     Dates: start: 20240315
  50. ZANTAC [Concomitant]
     Active Substance: RANITIDINE HYDROCHLORIDE
  51. NIZORAL [Concomitant]
     Active Substance: KETOCONAZOLE
     Route: 061
  52. NIZORAL [Concomitant]
     Active Substance: KETOCONAZOLE
     Route: 061
  53. VENTOLIN [Concomitant]
     Active Substance: ALBUTEROL SULFATE
  54. OMEPRAZOLE [Concomitant]
     Active Substance: OMEPRAZOLE
  55. EBASTINE [Concomitant]
     Active Substance: EBASTINE
  56. SIMPONI [Concomitant]
     Active Substance: GOLIMUMAB
     Indication: Rheumatoid arthritis
  57. RESTASIS [Concomitant]
     Active Substance: CYCLOSPORINE
     Route: 047
  58. RESTASIS [Concomitant]
     Active Substance: CYCLOSPORINE
     Route: 047
  59. RESTASIS [Concomitant]
     Active Substance: CYCLOSPORINE
     Route: 047
  60. NORITATE [Concomitant]
     Active Substance: METRONIDAZOLE
  61. VITAMIN D3 [Concomitant]
     Active Substance: CHOLECALCIFEROL
     Route: 048
  62. VITAMIN D3 [Concomitant]
     Active Substance: CHOLECALCIFEROL
     Route: 048
  63. ECTOSONE [Concomitant]
  64. DESLORATADINE [Concomitant]
     Active Substance: DESLORATADINE
  65. CLOTRIMAZOLE [Concomitant]
     Active Substance: CLOTRIMAZOLE
  66. BETADERM [Concomitant]
     Active Substance: BETAMETHASONE VALERATE
  67. CEPHALEXIN [Concomitant]
     Active Substance: CEPHALEXIN

REACTIONS (67)
  - Mental disorder [Recovered/Resolved]
  - Weight decreased [Unknown]
  - Nausea [Unknown]
  - Vomiting [Unknown]
  - Diarrhoea [Unknown]
  - Haematochezia [Unknown]
  - Arthrodesis [Recovered/Resolved]
  - Tenosynovitis stenosans [Recovered/Resolved]
  - Rectal haemorrhage [Unknown]
  - Synovial cyst [Recovered/Resolved]
  - Haemorrhoids [Unknown]
  - Blood cholesterol increased [Not Recovered/Not Resolved]
  - Arthrodesis [Not Recovered/Not Resolved]
  - Arthropathy [Unknown]
  - Hypercholesterolaemia [Unknown]
  - Osteoarthritis [Unknown]
  - Foot deformity [Unknown]
  - Endocrine ophthalmopathy [Unknown]
  - Foot deformity [Unknown]
  - Dyslipidaemia [Unknown]
  - Toxic shock syndrome [Unknown]
  - Psoriasis [Unknown]
  - Gait inability [Not Recovered/Not Resolved]
  - Ill-defined disorder [Not Recovered/Not Resolved]
  - Eyelid disorder [Recovering/Resolving]
  - Peripheral swelling [Recovering/Resolving]
  - Contusion [Recovering/Resolving]
  - Hypersensitivity [Recovering/Resolving]
  - Skin laceration [Unknown]
  - Abdominal pain upper [Unknown]
  - Eye infection [Recovered/Resolved]
  - Ill-defined disorder [Unknown]
  - Pain in extremity [Not Recovered/Not Resolved]
  - Hypersensitivity [Unknown]
  - Weight increased [Unknown]
  - Peripheral swelling [Unknown]
  - Abdominal pain [Unknown]
  - Flatulence [Unknown]
  - Joint swelling [Unknown]
  - Synovitis [Unknown]
  - Joint swelling [Unknown]
  - Swelling of eyelid [Unknown]
  - Eyelid disorder [Unknown]
  - Mean cell haemoglobin increased [Unknown]
  - Myalgia [Unknown]
  - Feeding disorder [Unknown]
  - Pain [Not Recovered/Not Resolved]
  - Vitamin D decreased [Unknown]
  - Rash [Unknown]
  - Headache [Unknown]
  - Skin disorder [Unknown]
  - Pruritus [Unknown]
  - Skin ulcer [Unknown]
  - Nasal ulcer [Unknown]
  - Treatment failure [Unknown]
  - Fatigue [Unknown]
  - Gastrointestinal disorder [Unknown]
  - Back pain [Unknown]
  - Pruritus [Unknown]
  - Contusion [Unknown]
  - Muscle spasms [Unknown]
  - Asthenia [Unknown]
  - Dyspepsia [Unknown]
  - Pelvic pain [Unknown]
  - C-reactive protein increased [Unknown]
  - Crying [Unknown]
  - Emotional disorder [Unknown]

NARRATIVE: CASE EVENT DATE: 20150204
